FAERS Safety Report 7678300-1 (Version None)
Quarter: 2011Q3

REPORT INFORMATION
  Report Type: 
  Country: None (occurrence: None)
  Receive Date: 20110811
  Receipt Date: 20110806
  Transmission Date: 20111222
  Serious: Yes (Other)
  Sender: FDA-Public Use
  Company Number: PHHY2011MX71471

PATIENT
  Sex: Female

DRUGS (2)
  1. CLONAZEPAM [Concomitant]
  2. TEGRETOL [Suspect]
     Indication: EPILEPSY
     Dosage: 2 TABLETS 200 MG PER DAY

REACTIONS (2)
  - HEADACHE [None]
  - ROAD TRAFFIC ACCIDENT [None]
